FAERS Safety Report 7760804-4 (Version None)
Quarter: 2011Q3

REPORT INFORMATION
  Report Type: 
  Country: None (occurrence: None)
  Receive Date: 20110919
  Receipt Date: 20110908
  Transmission Date: 20111222
  Serious: Yes (Hospitalization)
  Sender: FDA-Public Use
  Company Number: US-ASTRAZENECA-2009UW10365

PATIENT
  Age: 68 Year
  Sex: Female
  Weight: 51.3 kg

DRUGS (21)
  1. NEXIUM [Suspect]
     Route: 048
     Dates: start: 20090420
  2. STELAZINE [Concomitant]
  3. LEVOXYL [Concomitant]
  4. NEXIUM [Suspect]
     Indication: OESOPHAGITIS
     Route: 048
     Dates: start: 20010101, end: 20090101
  5. NEXIUM [Suspect]
     Route: 048
     Dates: start: 20090420
  6. NEXIUM [Suspect]
     Route: 048
  7. NEXIUM [Suspect]
     Route: 048
     Dates: start: 20090101
  8. EVISTA [Concomitant]
  9. COZAAR [Concomitant]
  10. BENICAR [Concomitant]
     Indication: HYPERTENSION
     Dates: start: 20100101
  11. CLONAZEPAM [Concomitant]
     Indication: DEPRESSION
  12. NEXIUM [Suspect]
     Indication: GASTROOESOPHAGEAL REFLUX DISEASE
     Route: 048
     Dates: start: 20010101, end: 20090101
  13. NEXIUM [Suspect]
     Dosage: FIVE TIMES A WEEK
     Route: 048
     Dates: start: 20090101, end: 20090101
  14. NEXIUM [Suspect]
     Route: 048
     Dates: start: 20090101
  15. NEXIUM [Suspect]
     Dosage: FIVE TIMES A WEEK
     Route: 048
     Dates: start: 20090101, end: 20090101
  16. NEXIUM [Suspect]
     Route: 048
  17. MIRTAZAPINE [Concomitant]
     Indication: ANXIETY
  18. NARDIL [Concomitant]
  19. MIRTAZAPINE [Concomitant]
     Indication: DEPRESSION
  20. CLONAZEPAM [Concomitant]
     Indication: ANXIETY
  21. SIMVASTATIN [Concomitant]
     Indication: BLOOD CHOLESTEROL ABNORMAL
     Dates: start: 20110201

REACTIONS (12)
  - GASTRITIS [None]
  - COLONIC POLYP [None]
  - FAECES DISCOLOURED [None]
  - DRUG INEFFECTIVE [None]
  - GASTRIC POLYPS [None]
  - MALAISE [None]
  - INCORRECT DOSE ADMINISTERED [None]
  - BURNING SENSATION [None]
  - BARRETT'S OESOPHAGUS [None]
  - GASTRIC DISORDER [None]
  - OESOPHAGITIS [None]
  - DRY MOUTH [None]
